FAERS Safety Report 24281426 (Version 1)
Quarter: 2024Q3

REPORT INFORMATION
  Report Type: Spontaneous
  Country: IN (occurrence: IN)
  Receive Date: 20240904
  Receipt Date: 20240904
  Transmission Date: 20241016
  Serious: Yes (Death)
  Sender: PFIZER
  Company Number: IN-PFIZER INC-202400248702

PATIENT
  Sex: Male

DRUGS (1)
  1. PALBOCICLIB [Suspect]
     Active Substance: PALBOCICLIB
     Indication: Breast cancer

REACTIONS (1)
  - Death [Fatal]
